FAERS Safety Report 8260000-0 (Version None)
Quarter: 2012Q2

REPORT INFORMATION
  Report Type: 
  Country: None (occurrence: None)
  Receive Date: 20120404
  Receipt Date: 20120323
  Transmission Date: 20120825
  Serious: Yes (Hospitalization)
  Sender: FDA-Public Use
  Company Number: US-JNJFOC-20120312962

PATIENT
  Sex: Male
  Weight: 63.5 kg

DRUGS (4)
  1. AZATHIOPRINE [Concomitant]
     Indication: COLITIS ULCERATIVE
     Route: 048
     Dates: start: 20060101
  2. MESALAMINE [Concomitant]
     Indication: COLITIS ULCERATIVE
     Route: 048
     Dates: start: 20011201
  3. REMICADE [Suspect]
     Indication: COLITIS ULCERATIVE
     Route: 042
     Dates: start: 20070101
  4. BUDESONIDE [Concomitant]
     Indication: COLITIS ULCERATIVE
     Route: 048
     Dates: start: 20060101

REACTIONS (6)
  - NERVOUSNESS [None]
  - POLYP [None]
  - COLON DYSPLASIA [None]
  - DEPRESSION [None]
  - PROCTITIS [None]
  - DRUG EFFECT DECREASED [None]
